FAERS Safety Report 25987170 (Version 1)
Quarter: 2025Q4

REPORT INFORMATION
  Report Type: Spontaneous
  Country: US (occurrence: US)
  Receive Date: 20251103
  Receipt Date: 20251103
  Transmission Date: 20260117
  Serious: Yes (Hospitalization)
  Sender: BRISTOL-MYERS SQUIBB COMPANY
  Company Number: US-BRISTOL-MYERS SQUIBB COMPANY-2025-147876

PATIENT
  Age: 86 Year
  Sex: Female
  Weight: 63.04 kg

DRUGS (1)
  1. REVLIMID [Suspect]
     Active Substance: LENALIDOMIDE
     Indication: Plasma cell myeloma
     Dosage: FREQUENCY- ONCE A DAY FOR 21 DAYS
     Route: 048
     Dates: start: 202407, end: 202509

REACTIONS (1)
  - Blood sodium decreased [Unknown]
